FAERS Safety Report 23188056 (Version 1)
Quarter: 2023Q4

REPORT INFORMATION
  Report Type: Spontaneous
  Country: US (occurrence: None)
  Receive Date: 20231114
  Receipt Date: 20231114
  Transmission Date: 20240110
  Serious: No
  Sender: FDA-Public Use
  Company Number: None

PATIENT
  Sex: Male
  Weight: 76.66 kg

DRUGS (5)
  1. LAMICTAL [Suspect]
     Active Substance: LAMOTRIGINE
     Dosage: OTHER FREQUENCY : 3 TABS AM 2 IN PM;?
     Route: 048
  2. DEPAKOTE [Suspect]
     Active Substance: DIVALPROEX SODIUM
  3. KEPPRA [Suspect]
     Active Substance: LEVETIRACETAM
  4. VIMPAT [Suspect]
     Active Substance: LACOSAMIDE
  5. ONFI [Suspect]
     Active Substance: CLOBAZAM

REACTIONS (1)
  - Seizure [None]
